FAERS Safety Report 23717548 (Version 1)
Quarter: 2024Q2

REPORT INFORMATION
  Report Type: Other
  Country: EG (occurrence: None)
  Receive Date: 20240408
  Receipt Date: 20240408
  Transmission Date: 20240715
  Serious: Yes (Disabling)
  Sender: FDA-Public Use
  Company Number: EG-ROCHE-3534128

PATIENT
  Age: 55 Year
  Sex: Male
  Weight: 82 kg

DRUGS (1)
  1. OCREVUS [Suspect]
     Active Substance: OCRELIZUMAB
     Indication: Multiple sclerosis
     Route: 042
     Dates: start: 20230312

REACTIONS (4)
  - Visual impairment [Not Recovered/Not Resolved]
  - Eye oedema [Not Recovered/Not Resolved]
  - Movement disorder [Not Recovered/Not Resolved]
  - Headache [Not Recovered/Not Resolved]

NARRATIVE: CASE EVENT DATE: 20240324
